FAERS Safety Report 15724609 (Version 1)
Quarter: 2018Q4

REPORT INFORMATION
  Report Type: Spontaneous
  Country: US (occurrence: US)
  Receive Date: 20181215
  Receipt Date: 20181215
  Transmission Date: 20190205
  Serious: Yes (Hospitalization, Other)
  Sender: FDA-Public Use
  Company Number: US-OTSUKA-2018_015999

PATIENT
  Age: 30 Year
  Sex: Female

DRUGS (2)
  1. ARIPIPRAZOLE. [Concomitant]
     Active Substance: ARIPIPRAZOLE
     Indication: PRODUCT USED FOR UNKNOWN INDICATION
     Dosage: UNK
     Route: 065
     Dates: start: 20150530, end: 20151009
  2. ABILIFY [Suspect]
     Active Substance: ARIPIPRAZOLE
     Indication: PRODUCT USED FOR UNKNOWN INDICATION
     Dosage: UNK
     Route: 065
     Dates: start: 201107, end: 201507

REACTIONS (13)
  - Neuropsychiatric symptoms [Unknown]
  - Emotional distress [Unknown]
  - Gambling disorder [Not Recovered/Not Resolved]
  - Compulsive sexual behaviour [Unknown]
  - Loss of employment [Unknown]
  - Mental disorder [Unknown]
  - Suicidal ideation [Unknown]
  - Injury [Unknown]
  - Economic problem [Unknown]
  - Homeless [Unknown]
  - Suicide attempt [Unknown]
  - Condition aggravated [Not Recovered/Not Resolved]
  - Mental disorder [Unknown]

NARRATIVE: CASE EVENT DATE: 201201
